FAERS Safety Report 12189216 (Version 1)
Quarter: 2016Q1

REPORT INFORMATION
  Report Type: Spontaneous
  Country: US (occurrence: US)
  Receive Date: 20160317
  Receipt Date: 20160317
  Transmission Date: 20160526
  Serious: No
  Sender: FDA-Public Use
  Company Number: US-ELI_LILLY_AND_COMPANY-US201603006105

PATIENT
  Sex: Female

DRUGS (3)
  1. TRULICITY [Suspect]
     Active Substance: DULAGLUTIDE
     Indication: TYPE 2 DIABETES MELLITUS
     Dosage: 0.75 MG, WEEKLY (1/W)
     Route: 065
  2. BYETTA [Concomitant]
     Active Substance: EXENATIDE
     Indication: PRODUCT USED FOR UNKNOWN INDICATION
     Dosage: UNK, UNKNOWN
     Route: 065
  3. BYETTA [Concomitant]
     Active Substance: EXENATIDE
     Dosage: UNK, UNKNOWN
     Route: 065
     Dates: start: 20160315

REACTIONS (5)
  - Fatigue [Unknown]
  - Diarrhoea [Unknown]
  - Epistaxis [Unknown]
  - Ear haemorrhage [Unknown]
  - Abdominal discomfort [Unknown]
